FAERS Safety Report 10749014 (Version 1)
Quarter: 2015Q1

REPORT INFORMATION
  Report Type: Spontaneous
  Country: CO (occurrence: None)
  Receive Date: 20150128
  Receipt Date: 20150128
  Transmission Date: 20150721
  Serious: Yes (Other)
  Sender: FDA-Public Use
  Company Number: None

PATIENT
  Age: 67 Year
  Weight: 58 kg

DRUGS (3)
  1. ALENDRONATE [Suspect]
     Active Substance: ALENDRONATE SODIUM
     Indication: PROPHYLAXIS
     Dosage: EVERY 3 MONTHS, INTO A VEIN
     Dates: start: 20150127, end: 20150127
  2. CALCIUM [Suspect]
     Active Substance: CALCIUM
  3. ALENDRONATE [Suspect]
     Active Substance: ALENDRONATE SODIUM
     Indication: OSTEOPOROSIS
     Dosage: EVERY 3 MONTHS, INTO A VEIN
     Dates: start: 20150127, end: 20150127

REACTIONS (3)
  - Chest pain [None]
  - Arthralgia [None]
  - Application site pain [None]

NARRATIVE: CASE EVENT DATE: 20150127
